APPROVED DRUG PRODUCT: HYDROFLUMETHIAZIDE
Active Ingredient: HYDROFLUMETHIAZIDE
Strength: 50MG
Dosage Form/Route: TABLET;ORAL
Application: A088031 | Product #001
Applicant: WATSON LABORATORIES INC
Approved: Apr 6, 1983 | RLD: No | RS: No | Type: DISCN